FAERS Safety Report 12890395 (Version 3)
Quarter: 2016Q4

REPORT INFORMATION
  Report Type: Report from Study
  Country: NZ (occurrence: NZ)
  Receive Date: 20161027
  Receipt Date: 20161212
  Transmission Date: 20170207
  Serious: Yes (Hospitalization)
  Sender: FDA-Public Use
  Company Number: PHHO2016NZ015659

PATIENT
  Age: 63 Year
  Sex: Male
  Weight: 87.2 kg

DRUGS (20)
  1. BLINDED PLACEBO [Suspect]
     Active Substance: INVESTIGATIONAL PRODUCT
     Dosage: CODE NOT BROKEN
     Route: 042
     Dates: start: 20161004, end: 20161004
  2. LYSINE [Concomitant]
     Active Substance: LYSINE
     Indication: PRODUCT USED FOR UNKNOWN INDICATION
     Dosage: 1600 MG, UNK
     Route: 065
     Dates: start: 201503
  3. BLINDED MK-3475 [Suspect]
     Active Substance: LAMBROLIZUMAB
     Dosage: CODE NOT BROKEN
     Route: 042
     Dates: start: 20161025
  4. BLINDED MK-3475 [Suspect]
     Active Substance: LAMBROLIZUMAB
     Indication: MALIGNANT MELANOMA
     Dosage: CODE NOT BROKEN
     Route: 042
     Dates: start: 20160913, end: 20160913
  5. BLINDED NO TREATMENT RECEIVED [Suspect]
     Active Substance: INVESTIGATIONAL PRODUCT
     Dosage: CODE NOT BROKEN
     Route: 042
     Dates: start: 20161025
  6. BLINDED TRAMETINIB [Suspect]
     Active Substance: TRAMETINIB
     Dosage: CODE NOT BROKEN
     Route: 042
     Dates: start: 20161025
  7. TRAMETINIB [Suspect]
     Active Substance: TRAMETINIB
     Indication: MALIGNANT MELANOMA
     Dosage: 2 MG, QD
     Route: 048
     Dates: start: 20160913, end: 20160913
  8. BLINDED DABRAFENIB [Suspect]
     Active Substance: DABRAFENIB
     Indication: MALIGNANT MELANOMA
     Dosage: CODE NOT BROKEN
     Route: 042
     Dates: start: 20160913, end: 20160913
  9. BLINDED DABRAFENIB [Suspect]
     Active Substance: DABRAFENIB
     Dosage: CODE NOT BROKEN
     Route: 042
     Dates: start: 20161004, end: 20161004
  10. BLINDED PLACEBO [Suspect]
     Active Substance: INVESTIGATIONAL PRODUCT
     Dosage: CODE NOT BROKEN
     Route: 042
     Dates: start: 20161025
  11. BLINDED NO TREATMENT RECEIVED [Suspect]
     Active Substance: INVESTIGATIONAL PRODUCT
     Indication: MALIGNANT MELANOMA
     Dosage: CODE NOT BROKEN
     Route: 042
     Dates: start: 20160913, end: 20160913
  12. BLINDED NO TREATMENT RECEIVED [Suspect]
     Active Substance: INVESTIGATIONAL PRODUCT
     Dosage: CODE NOT BROKEN
     Route: 042
     Dates: start: 20161004, end: 20161004
  13. DABRAFENIB [Suspect]
     Active Substance: DABRAFENIB
     Indication: MALIGNANT MELANOMA
     Dosage: 150 MG, BID
     Route: 048
  14. BLINDED PLACEBO [Suspect]
     Active Substance: INVESTIGATIONAL PRODUCT
     Indication: MALIGNANT MELANOMA
     Dosage: CODE NOT BROKEN
     Route: 042
     Dates: start: 20160913, end: 20160913
  15. BLINDED TRAMETINIB [Suspect]
     Active Substance: TRAMETINIB
     Indication: MALIGNANT MELANOMA
     Dosage: CODE NOT BROKEN
     Route: 042
     Dates: start: 20160913, end: 20160913
  16. BLINDED MK-3475 [Suspect]
     Active Substance: LAMBROLIZUMAB
     Dosage: CODE NOT BROKEN
     Route: 042
     Dates: start: 20161004, end: 20161004
  17. BLINDED DABRAFENIB [Suspect]
     Active Substance: DABRAFENIB
     Dosage: CODE NOT BROKEN
     Route: 042
     Dates: start: 20161025
  18. ACETAMINOPHEN. [Concomitant]
     Active Substance: ACETAMINOPHEN
     Indication: PRODUCT USED FOR UNKNOWN INDICATION
     Dosage: 500 DF, UNK
     Route: 065
     Dates: start: 20160811
  19. OMEPRAZOLE. [Concomitant]
     Active Substance: OMEPRAZOLE
     Indication: PRODUCT USED FOR UNKNOWN INDICATION
     Dosage: 20 MG, UNK
     Route: 048
     Dates: start: 20160919
  20. BLINDED TRAMETINIB [Suspect]
     Active Substance: TRAMETINIB
     Dosage: CODE NOT BROKEN
     Route: 042
     Dates: start: 20161004, end: 20161004

REACTIONS (2)
  - Diarrhoea [Recovered/Resolved]
  - Vomiting [Recovered/Resolved]

NARRATIVE: CASE EVENT DATE: 20161019
